FAERS Safety Report 7170330-1 (Version None)
Quarter: 2010Q4

REPORT INFORMATION
  Report Type: 
  Country: None (occurrence: None)
  Receive Date: 20101123
  Receipt Date: 20100922
  Transmission Date: 20110411
  Serious: No
  Sender: FDA-Public Use
  Company Number: 019252

PATIENT
  Age: 62 Year
  Sex: Male

DRUGS (2)
  1. CIMZIA [Suspect]
     Indication: CROHN'S DISEASE
     Dosage: (400 MG PER MONTH SUBCUTANEOUS)
     Route: 058
     Dates: start: 20100301
  2. WELCHOL [Concomitant]

REACTIONS (2)
  - ERYTHEMA [None]
  - FLUSHING [None]
